FAERS Safety Report 7243596-7 (Version None)
Quarter: 2011Q1

REPORT INFORMATION
  Report Type: 
  Country: None (occurrence: None)
  Receive Date: 20110118
  Receipt Date: 20101231
  Transmission Date: 20110831
  Serious: Yes (Other)
  Sender: FDA-Public Use
  Company Number: AUR-APL-2010-03146

PATIENT
  Age: 62 Year
  Sex: Male
  Weight: 93 kg

DRUGS (5)
  1. DETEMIR INSULIN (LEVEMIR) [Concomitant]
  2. METFORMIN HCL [Suspect]
     Indication: DIABETES MELLITUS
     Dosage: 3000 MG
     Dates: start: 20070101
  3. GLIMEPIRIDE [Suspect]
     Indication: DIABETES MELLITUS
     Dosage: 3MG - ORAL
     Route: 048
  4. METFORMIN HCL [Suspect]
     Indication: DIABETES MELLITUS
     Dosage: 500 MG - DAILY
  5. GLICLAZIDE TABLET [Suspect]
     Indication: DIABETES MELLITUS
     Dosage: 2 TABLETS - DAILY - ORAL
     Route: 048
     Dates: start: 20040101, end: 20070101

REACTIONS (3)
  - GLYCOSYLATED HAEMOGLOBIN INCREASED [None]
  - BLOOD GLUCOSE INCREASED [None]
  - ABDOMINAL PAIN UPPER [None]
